FAERS Safety Report 7514134-6 (Version None)
Quarter: 2011Q2

REPORT INFORMATION
  Report Type: 
  Country: None (occurrence: None)
  Receive Date: 20110531
  Receipt Date: 20101108
  Transmission Date: 20111010
  Serious: No
  Sender: FDA-Public Use
  Company Number: US-BAYER-201040820NA

PATIENT
  Sex: Male

DRUGS (1)
  1. AVELOX [Suspect]
     Indication: PNEUMONIA
     Dosage: 400 MG, ONCE
     Route: 042
     Dates: start: 20101108, end: 20101108

REACTIONS (3)
  - ERYTHEMA [None]
  - PRURITUS [None]
  - INJECTION SITE REACTION [None]
